FAERS Safety Report 16886782 (Version 1)
Quarter: 2019Q4

REPORT INFORMATION
  Report Type: Report from Study
  Country: CA (occurrence: CA)
  Receive Date: 20191004
  Receipt Date: 20191004
  Transmission Date: 20200122
  Serious: Yes (Other)
  Sender: FDA-Public Use
  Company Number: CA-NALPROPION PHARMACEUTICALS INC.-2019-007669

PATIENT

DRUGS (9)
  1. CONTRAVE [Suspect]
     Active Substance: BUPROPION HYDROCHLORIDE\NALTREXONE HYDROCHLORIDE
     Dosage: 2 TABLETS IN THE MORNING, 2 TABLETS IN THE EVENING
     Route: 048
     Dates: start: 20190623
  2. APO OLMESARTAN/HCTZ [Concomitant]
     Active Substance: HYDROCHLOROTHIAZIDE\OLMESARTAN MEDOXOMIL
     Indication: BLOOD PRESSURE ABNORMAL
     Dosage: 40/25 MG
  3. AURO AMLODIPINE [Concomitant]
     Indication: BLOOD PRESSURE ABNORMAL
     Dosage: 5 MG
  4. CONTRAVE [Suspect]
     Active Substance: BUPROPION HYDROCHLORIDE\NALTREXONE HYDROCHLORIDE
     Dosage: 1 TABLET IN THE MORNING,1 TABLET IN THE EVENING
     Route: 048
     Dates: start: 20190609, end: 20190615
  5. CONTRAVE [Suspect]
     Active Substance: BUPROPION HYDROCHLORIDE\NALTREXONE HYDROCHLORIDE
     Dosage: 2 TABLETS IN THE MORNING,1 TABLET IN THE EVENING
     Route: 048
     Dates: start: 20190616, end: 20190622
  6. SANDOZ-BISOPROLOL [Concomitant]
     Active Substance: BISOPROLOL FUMARATE
     Indication: BLOOD PRESSURE ABNORMAL
     Dosage: 5 MG
  7. CONTRAVE [Suspect]
     Active Substance: BUPROPION HYDROCHLORIDE\NALTREXONE HYDROCHLORIDE
     Indication: WEIGHT CONTROL
     Dosage: 1 TABLET IN THE MORNING
     Route: 048
     Dates: start: 20190602, end: 20190608
  8. AURO ROSUVASTATIN [Concomitant]
     Indication: BLOOD PRESSURE ABNORMAL
     Dosage: 20 MG
  9. MAR-EZETIMIBE [Concomitant]
     Indication: BLOOD PRESSURE ABNORMAL
     Dosage: 10 MG

REACTIONS (5)
  - Abnormal dreams [Not Recovered/Not Resolved]
  - Hereditary spastic paraplegia [Not Recovered/Not Resolved]
  - Constipation [Not Recovered/Not Resolved]
  - Dizziness [Recovered/Resolved]
  - Condition aggravated [Not Recovered/Not Resolved]

NARRATIVE: CASE EVENT DATE: 201906
